FAERS Safety Report 4941185-8 (Version None)
Quarter: 2006Q1

REPORT INFORMATION
  Report Type: 
  Country: None (occurrence: None)
  Receive Date: 20060310
  Receipt Date: 20060310
  Transmission Date: 20060701
  Serious: Yes (Hospitalization)
  Sender: FDA-Public Use
  Company Number: None

PATIENT
  Sex: Female
  Weight: 68.5 kg

DRUGS (17)
  1. ERLOTINIB [Suspect]
     Indication: NON-SMALL CELL LUNG CANCER
     Dosage: 100 MG PO
     Route: 048
     Dates: start: 20050713
  2. ADVAIR DISKUS 100/50 [Concomitant]
  3. ATIVAN [Concomitant]
  4. BACTROBAN [Concomitant]
  5. EFFEXOR [Concomitant]
  6. EPIPEN [Concomitant]
  7. IBUPROFEN [Concomitant]
  8. IMODIUM [Concomitant]
  9. METROGEL-ACNE [Concomitant]
  10. OMEPRAZOLE [Concomitant]
  11. OXYCODONE [Concomitant]
  12. SELENIUM SULFIDE [Concomitant]
  13. SPIRIVA [Concomitant]
  14. TEMAZEPAM [Concomitant]
  15. ZOMETA [Concomitant]
  16. ZYRTEC [Concomitant]
  17. VENTOLIN [Concomitant]

REACTIONS (5)
  - ERYTHEMA [None]
  - PURULENT DISCHARGE [None]
  - SKIN INFLAMMATION [None]
  - SKIN LESION [None]
  - SKIN WARM [None]
